FAERS Safety Report 26172832 (Version 1)
Quarter: 2025Q4

REPORT INFORMATION
  Report Type: Spontaneous
  Country: US (occurrence: US)
  Receive Date: 20251218
  Receipt Date: 20251218
  Transmission Date: 20260118
  Serious: Yes (Other)
  Sender: HETERO
  Company Number: US-HETERO-HET2025US07707

PATIENT
  Age: 42 Year
  Sex: Female

DRUGS (1)
  1. LISINOPRIL [Suspect]
     Active Substance: LISINOPRIL
     Indication: Product use in unapproved indication
     Dosage: 40 MILLIGRAM
     Route: 065

REACTIONS (1)
  - Intestinal angioedema [Recovered/Resolved]
